FAERS Safety Report 4861192-3 (Version None)
Quarter: 2005Q4

REPORT INFORMATION
  Report Type: 
  Country: None (occurrence: None)
  Receive Date: 20051216
  Receipt Date: 20051207
  Transmission Date: 20060501
  Serious: Yes (Hospitalization)
  Sender: FDA-Public Use
  Company Number: HQWYE893907DEC05

PATIENT
  Age: 47 Year
  Sex: Male

DRUGS (5)
  1. CORDARONE [Suspect]
     Indication: WOLFF-PARKINSON-WHITE SYNDROME
     Dosage: 200 MG 1X PER 1 DAY; ORAL
     Route: 048
     Dates: end: 20051021
  2. KALIPOZ-PROLONGATUM (POTASSIUM CHLORIDE) [Concomitant]
  3. MAGNE-B6 (MAGNESIUM LACTATE/PYRIDOXINE HYDROCHLORIDE) [Concomitant]
  4. LEXOTAN (BROMAZEPAM) [Concomitant]
  5. ASPIRIN [Concomitant]

REACTIONS (2)
  - HYPERTHYROIDISM [None]
  - SUPRAVENTRICULAR TACHYCARDIA [None]
